FAERS Safety Report 20408856 (Version 2)
Quarter: 2022Q4

REPORT INFORMATION
  Report Type: Spontaneous
  Country: CA (occurrence: CA)
  Receive Date: 20220201
  Receipt Date: 20221213
  Transmission Date: 20230113
  Serious: Yes (Death, Hospitalization, Other)
  Sender: FDA-Public Use
  Company Number: CA-AUROBINDO-AUR-APL-2022-002392

PATIENT
  Age: 77 Year
  Sex: Male
  Weight: 63 kg

DRUGS (20)
  1. CLOPIDOGREL [Suspect]
     Active Substance: CLOPIDOGREL BISULFATE
     Indication: Product used for unknown indication
     Dosage: 75 MILLIGRAM, ONCE A DAY
     Route: 065
  2. SERTRALINE [Suspect]
     Active Substance: SERTRALINE HYDROCHLORIDE
     Indication: Major depression
     Dosage: 150 MILLIGRAM, ONCE A DAY
     Route: 065
  3. SERTRALINE HYDROCHLORIDE [Suspect]
     Active Substance: SERTRALINE HYDROCHLORIDE
     Indication: Major depression
     Dosage: 150 MILLIGRAM, ONCE A DAY
     Route: 048
  4. QUETIAPINE [Suspect]
     Active Substance: QUETIAPINE
     Indication: Dementia
     Dosage: 25 MILLIGRAM, ONCE A DAY
     Route: 048
  5. QUETIAPINE [Suspect]
     Active Substance: QUETIAPINE
     Indication: Agitation
     Dosage: 12.5 MILLIGRAM, TWO TIMES A DAY
     Route: 048
  6. QUETIAPINE [Suspect]
     Active Substance: QUETIAPINE
     Indication: Aggression
     Dosage: 12.5 MILLIGRAM, AS NECESSARY
     Route: 048
  7. QUETIAPINE [Suspect]
     Active Substance: QUETIAPINE
     Indication: Dementia
     Dosage: UNK
     Route: 065
  8. QUETIAPINE [Suspect]
     Active Substance: QUETIAPINE
     Indication: Agitation
     Dosage: UNK
     Route: 065
  9. QUETIAPINE [Suspect]
     Active Substance: QUETIAPINE
     Indication: Aggression
     Dosage: UNK
     Route: 065
  10. SERTRALINE [Suspect]
     Active Substance: SERTRALINE HYDROCHLORIDE
     Indication: Major depression
     Dosage: 150 MILLIGRAM, ONCE A DAY
     Route: 048
  11. ACETAMINOPHEN [Concomitant]
     Active Substance: ACETAMINOPHEN
     Indication: Product used for unknown indication
     Dosage: UNK
     Route: 065
  12. CHOLECALCIFEROL [Concomitant]
     Active Substance: CHOLECALCIFEROL
     Indication: Product used for unknown indication
     Dosage: UNK
     Route: 065
  13. CHOLECALCIFEROL [Concomitant]
     Active Substance: CHOLECALCIFEROL
     Dosage: 100000 INTERNATIONAL UNIT, EVERY WEEK
     Route: 065
  14. CYANOCOBALAMIN [Concomitant]
     Active Substance: CYANOCOBALAMIN
     Indication: Product used for unknown indication
     Dosage: 1200 MICROGRAM, EVERY OTHER DAY
     Route: 065
  15. DICLOFENAC [Concomitant]
     Active Substance: DICLOFENAC
     Indication: Product used for unknown indication
     Dosage: UNK
     Route: 065
  16. ESOMEPRAZOLE [Concomitant]
     Active Substance: ESOMEPRAZOLE
     Indication: Product used for unknown indication
     Dosage: 40 MILLIGRAM, ONCE A DAY
     Route: 065
  17. METFORMIN [Concomitant]
     Active Substance: METFORMIN HYDROCHLORIDE
     Indication: Product used for unknown indication
     Dosage: 500 MILLIGRAM, TWO TIMES A DAY
     Route: 065
  18. POLYETHYLENE GLYCOL 3350 [Concomitant]
     Active Substance: POLYETHYLENE GLYCOL 3350
     Indication: Product used for unknown indication
     Dosage: 17 GRAM
     Route: 065
  19. POLYETHYLENE GLYCOL [Concomitant]
     Active Substance: POLYETHYLENE GLYCOL
     Indication: Product used for unknown indication
     Dosage: UNK
     Route: 065
  20. ROSUVASTATIN [Concomitant]
     Active Substance: ROSUVASTATIN
     Indication: Product used for unknown indication
     Dosage: 20 MILLIGRAM, ONCE A DAY
     Route: 065

REACTIONS (11)
  - Brain herniation [Fatal]
  - Coma [Fatal]
  - Haemorrhage intracranial [Fatal]
  - Back pain [Fatal]
  - Confusional state [Fatal]
  - Fall [Fatal]
  - Head injury [Fatal]
  - Headache [Fatal]
  - Nausea [Fatal]
  - Orthostatic hypotension [Fatal]
  - Psychomotor disadaptation syndrome [Fatal]
